FAERS Safety Report 18066312 (Version 1)
Quarter: 2020Q3

REPORT INFORMATION
  Report Type: Spontaneous
  Country: PL (occurrence: PL)
  Receive Date: 20200724
  Receipt Date: 20200724
  Transmission Date: 20201103
  Serious: Yes (Other)
  Sender: FDA-Public Use
  Company Number: PL-PFIZER INC-2020276332

PATIENT
  Age: 42 Year
  Sex: Female

DRUGS (2)
  1. RYDAPT [Suspect]
     Active Substance: MIDOSTAURIN
     Dosage: UNK
  2. CYTARABINE. [Suspect]
     Active Substance: CYTARABINE
     Dosage: UNK

REACTIONS (5)
  - Abdominal pain [Recovering/Resolving]
  - Hypertension [Recovered/Resolved]
  - Nausea [Recovering/Resolving]
  - Clostridium difficile infection [Unknown]
  - Diarrhoea [Recovering/Resolving]
